FAERS Safety Report 7152802-9 (Version None)
Quarter: 2010Q4

REPORT INFORMATION
  Report Type: 
  Country: None (occurrence: None)
  Receive Date: 20101213
  Receipt Date: 20101129
  Transmission Date: 20110411
  Serious: Yes (Other)
  Sender: FDA-Public Use
  Company Number: PHHY2010US63990

PATIENT
  Sex: Male

DRUGS (1)
  1. TASIGNA [Suspect]
     Indication: CHRONIC MYELOID LEUKAEMIA
     Dosage: 200 MG TWO CAPSULES DAILY

REACTIONS (6)
  - DEPRESSION [None]
  - ELECTROCARDIOGRAM QT PROLONGED [None]
  - KNEE OPERATION [None]
  - PALPITATIONS [None]
  - SHOULDER OPERATION [None]
  - TONSILLECTOMY [None]
